FAERS Safety Report 7668497-1 (Version None)
Quarter: 2011Q3

REPORT INFORMATION
  Report Type: 
  Country: None (occurrence: None)
  Receive Date: 20110808
  Receipt Date: 20110802
  Transmission Date: 20111222
  Serious: Yes (Other)
  Sender: FDA-Public Use
  Company Number: AU-B.I. PHARMACEUTICALS,INC./RIDGEFIELD-2011-AU-00657AU

PATIENT
  Sex: Female
  Weight: 62 kg

DRUGS (6)
  1. LANOXIN [Concomitant]
     Dosage: 125 MCG
  2. LERCANIDIPINE [Concomitant]
     Dosage: 20 MG
  3. PRADAXA [Suspect]
     Indication: ATRIAL FIBRILLATION
  4. AVAPRO [Concomitant]
     Dosage: 150 MG
  5. SOTALOL HYDROCHLORIDE [Concomitant]
     Dosage: 320 MG
  6. PRADAXA [Suspect]
     Indication: CEREBROVASCULAR ACCIDENT PROPHYLAXIS
     Dosage: 220 MG
     Dates: start: 20110628

REACTIONS (1)
  - TRANSIENT ISCHAEMIC ATTACK [None]
